FAERS Safety Report 19283731 (Version 1)
Quarter: 2021Q2

REPORT INFORMATION
  Report Type: Spontaneous
  Country: US (occurrence: US)
  Receive Date: 20210520
  Receipt Date: 20210520
  Transmission Date: 20210717
  Serious: No
  Sender: FDA-Public Use
  Company Number: US-DRREDDYS-USA/USA/21/0135479

PATIENT
  Age: 18 Year
  Sex: Female

DRUGS (2)
  1. ZENATANE [Suspect]
     Active Substance: ISOTRETINOIN
     Indication: PRODUCT USED FOR UNKNOWN INDICATION
     Dosage: RMA ISSUE DATE :2/9/2021 8:16:35 PM,3/8/2021 10:02:59 AM,4/7/2021 3:48:20 PM
  2. ZENATANE [Suspect]
     Active Substance: ISOTRETINOIN
     Dosage: RMA ISSUE DATE:1/11/2021 1:47:48 PM,2/9/2021 8:16:24 PM,3/8/2021 10:03:14 AM

REACTIONS (3)
  - Chapped lips [Unknown]
  - Product quality issue [Unknown]
  - Drug ineffective [Unknown]
